FAERS Safety Report 8410696-5 (Version None)
Quarter: 2012Q2

REPORT INFORMATION
  Report Type: 
  Country: None (occurrence: None)
  Receive Date: 20120323
  Receipt Date: 20111219
  Transmission Date: 20120825
  Serious: Yes (Hospitalization)
  Sender: FDA-Public Use
  Company Number: 163-21880-11120444

PATIENT
  Age: 69 Year
  Sex: Male

DRUGS (9)
  1. METOPROLOL TARTRATE [Concomitant]
  2. ALKERAN [Concomitant]
  3. PRILOSEC (OMEPRAZOLE)(UNKNOWN) [Concomitant]
  4. PACERONE (AMIODARONE HYDROCHLORIDE)(UNKNOWN) [Concomitant]
  5. REVLIMID [Suspect]
     Indication: MULTIPLE MYELOMA
     Dosage: 5 MG, DAILY X 21 DAYS, PO
     Route: 048
     Dates: start: 20110727, end: 20110101
  6. PREDNISONE [Concomitant]
  7. ASPIRIN [Concomitant]
  8. ACYCLOVIR (ACICLOVIR)(UNKNOWN) [Concomitant]
  9. VELCADE [Concomitant]

REACTIONS (1)
  - DYSPNOEA [None]
